FAERS Safety Report 4963087-3 (Version None)
Quarter: 2006Q1

REPORT INFORMATION
  Report Type: 
  Country: None (occurrence: None)
  Receive Date: 20060331
  Receipt Date: 20060317
  Transmission Date: 20060701
  Serious: Yes (Death)
  Sender: FDA-Public Use
  Company Number: 2006-00652

PATIENT

DRUGS (2)
  1. VELCADE [Suspect]
     Indication: LEUKAEMIA
     Dosage: IV BOLUS
     Route: 040
  2. DOXORUBICIN                     (DOXORUBICIN) [Suspect]
     Indication: LEUKAEMIA
     Dosage: 30.00 MG/M2, INTRAVENOUS
     Route: 042

REACTIONS (1)
  - DISEASE PROGRESSION [None]
